FAERS Safety Report 18368973 (Version 1)
Quarter: 2020Q4

REPORT INFORMATION
  Report Type: Spontaneous
  Country: DE (occurrence: DE)
  Receive Date: 20201011
  Receipt Date: 20201011
  Transmission Date: 20210114
  Serious: Yes (Life-Threatening, Hospitalization, Other)
  Sender: FDA-Public Use
  Company Number: NVSC2020DE273861

PATIENT
  Sex: Female

DRUGS (3)
  1. FOLIC ACID. [Concomitant]
     Active Substance: FOLIC ACID
     Indication: PRODUCT USED FOR UNKNOWN INDICATION
     Dosage: UNK UNK, QW
     Route: 065
     Dates: start: 20200313
  2. MTX HEXAL 15 MG TABLETTEN [Suspect]
     Active Substance: METHOTREXATE SODIUM
     Indication: SERONEGATIVE ARTHRITIS
     Dosage: UNK UNK, QW
     Route: 065
     Dates: start: 20200313, end: 20200717
  3. MTX HEXAL 15 MG TABLETTEN [Suspect]
     Active Substance: METHOTREXATE SODIUM
     Dosage: 7.5 MG, QW
     Route: 065
     Dates: start: 20200717, end: 20200915

REACTIONS (4)
  - Haemophilia [Unknown]
  - Platelet count decreased [Unknown]
  - Pancytopenia [Unknown]
  - Bone marrow disorder [Unknown]
